FAERS Safety Report 4592790-2 (Version None)
Quarter: 2005Q1

REPORT INFORMATION
  Report Type: 
  Country: None (occurrence: None)
  Receive Date: 20050228
  Receipt Date: 20050217
  Transmission Date: 20050727
  Serious: Yes (Death, Hospitalization)
  Sender: FDA-Public Use
  Company Number: JP-JNJFOC-20050201331

PATIENT
  Sex: Female

DRUGS (7)
  1. RISPERDAL [Suspect]
     Indication: SCHIZOPHRENIA
     Route: 049
     Dates: start: 20050129, end: 20050201
  2. PEROSPIRONE HYDROCHLORIDE HYDRATE [Concomitant]
     Indication: SCHIZOPHRENIA
     Route: 049
  3. LORAZEPAM [Concomitant]
     Indication: SCHIZOPHRENIA
  4. BIPERIDEN HYDROCHLORIDE TAB [Concomitant]
     Indication: SCHIZOPHRENIA
  5. LEVOMEPROMAZINE MALEATE [Concomitant]
     Indication: SCHIZOPHRENIA
  6. BROTIZOLAM [Concomitant]
     Indication: SCHIZOPHRENIA
  7. FLUNITRAZEPAM [Concomitant]
     Indication: SCHIZOPHRENIA

REACTIONS (4)
  - RESUSCITATION [None]
  - SUDDEN DEATH [None]
  - TACHYCARDIA [None]
  - VENTRICULAR FIBRILLATION [None]
